FAERS Safety Report 14260767 (Version 7)
Quarter: 2018Q4

REPORT INFORMATION
  Report Type: Spontaneous
  Country: JP (occurrence: JP)
  Receive Date: 20171207
  Receipt Date: 20181104
  Transmission Date: 20190204
  Serious: Yes (Hospitalization, Other)
  Sender: FDA-Public Use
  Company Number: JP-009507513-1705JPN001851J

PATIENT
  Age: 79 Year
  Sex: Male
  Weight: 38 kg

DRUGS (5)
  1. TRANSAMIN [Suspect]
     Active Substance: TRANEXAMIC ACID
     Dosage: 250.0 MG, TID
     Route: 048
     Dates: start: 20170425, end: 20170531
  2. KEYTRUDA [Suspect]
     Active Substance: PEMBROLIZUMAB
     Indication: LUNG ADENOCARCINOMA STAGE IV
     Dosage: 200 MILLIGRAM, Q3W
     Route: 041
     Dates: start: 20170426, end: 20170517
  3. ADONA [CARBAZOCHROME SODIUM SULFONATE] [Suspect]
     Active Substance: CARBAZOCHROME SODIUM SULFONATE
     Indication: LUNG ADENOCARCINOMA STAGE IV
     Dosage: 30.0 MG, TID
     Route: 048
     Dates: start: 20170425, end: 20170531
  4. MUCODYNE [Concomitant]
     Active Substance: CARBOCYSTEINE
     Dosage: UNK
     Route: 065
  5. AMBROXOL HYDROCHLORIDE [Concomitant]
     Active Substance: AMBROXOL HYDROCHLORIDE
     Dosage: UNK
     Route: 065

REACTIONS (5)
  - Pyrexia [Unknown]
  - Decreased appetite [Recovered/Resolved]
  - Rash [Recovering/Resolving]
  - Delirium [Unknown]
  - Erythema [Recovered/Resolved]

NARRATIVE: CASE EVENT DATE: 2017
